FAERS Safety Report 24653477 (Version 1)
Quarter: 2024Q4

REPORT INFORMATION
  Report Type: Spontaneous
  Country: US (occurrence: None)
  Receive Date: 20241121
  Receipt Date: 20241121
  Transmission Date: 20250115
  Serious: Yes (Hospitalization, Other)
  Sender: Public
  Company Number: None

PATIENT
  Age: 55 Year
  Sex: Male

DRUGS (1)
  1. DARZALEX FASPRO [Suspect]
     Active Substance: DARATUMUMAB\HYALURONIDASE-FIHJ

REACTIONS (7)
  - Wrong product administered [None]
  - Wrong patient received product [None]
  - Product selection error [None]
  - Hyperhidrosis [None]
  - Heart rate increased [None]
  - Nausea [None]
  - Cardio-respiratory arrest [None]

NARRATIVE: CASE EVENT DATE: 20241112
